FAERS Safety Report 5578965-4 (Version None)
Quarter: 2007Q4

REPORT INFORMATION
  Report Type: 
  Country: None (occurrence: None)
  Receive Date: 20071228
  Receipt Date: 20071218
  Transmission Date: 20080405
  Serious: Yes (Hospitalization)
  Sender: FDA-Public Use
  Company Number: TAP2007Q00084

PATIENT
  Age: 80 Year
  Sex: Male

DRUGS (9)
  1. PREVACID [Suspect]
     Indication: GASTROOESOPHAGEAL REFLUX DISEASE
     Dosage: 30 MG, 1 IN 1 D, PER ORAL
     Route: 048
     Dates: start: 20060807, end: 20060814
  2. BACLOFEN [Concomitant]
  3. LIPITOR [Concomitant]
  4. METFORMIN (METFORMIN) [Concomitant]
  5. GLIPIZIDE [Concomitant]
  6. ATENOLOL [Concomitant]
  7. HYDROCHLOROTHIAZIDE [Concomitant]
  8. ASPIRIN [Concomitant]
  9. FLOMAX (MORNIFLUMATE) [Concomitant]

REACTIONS (4)
  - ASTHENIA [None]
  - BLOOD ALKALINE PHOSPHATASE INCREASED [None]
  - CONDITION AGGRAVATED [None]
  - METABOLIC ENCEPHALOPATHY [None]
